FAERS Safety Report 9239179 (Version 1)
Quarter: 2013Q2

REPORT INFORMATION
  Report Type: Report from Study
  Country: CZ (occurrence: CZ)
  Receive Date: 20130418
  Receipt Date: 20130418
  Transmission Date: 20140414
  Serious: Yes (Hospitalization)
  Sender: FDA-Public Use
  Company Number: CZ-JNJFOC-20130407796

PATIENT
  Age: 60 Year
  Sex: Female

DRUGS (3)
  1. SIMPONI [Suspect]
     Indication: RHEUMATOID ARTHRITIS
     Route: 058
     Dates: start: 20111219
  2. MTX [Concomitant]
     Route: 048
  3. ACIDUM FOLICUM [Concomitant]
     Route: 048

REACTIONS (1)
  - Bronchopneumonia [Recovered/Resolved]
